FAERS Safety Report 9979702 (Version 1)
Quarter: 2014Q1

REPORT INFORMATION
  Report Type: Report from Study
  Country: US (occurrence: US)
  Receive Date: 20140306
  Receipt Date: 20140306
  Transmission Date: 20141002
  Serious: No
  Sender: FDA-Public Use
  Company Number: US-ABBVIE-13P-163-1170366-00

PATIENT
  Age: 62 Year
  Sex: Female
  Weight: 86.26 kg

DRUGS (6)
  1. HUMIRA [Suspect]
     Indication: PSORIATIC ARTHROPATHY
     Route: 058
     Dates: start: 20121108
  2. LORATADINE [Concomitant]
     Indication: HYPERSENSITIVITY
  3. SERTRALINE [Concomitant]
     Indication: DEPRESSION
  4. LISINOPRIL [Concomitant]
     Indication: HYPERTENSION
  5. ROPINIROLE [Concomitant]
     Indication: RESTLESS LEGS SYNDROME
  6. NOVOLIN [Concomitant]
     Indication: DIABETES MELLITUS

REACTIONS (6)
  - Respiratory tract congestion [Recovering/Resolving]
  - Insomnia [Not Recovered/Not Resolved]
  - Arthralgia [Not Recovered/Not Resolved]
  - Sinusitis [Recovering/Resolving]
  - Sinus headache [Recovered/Resolved]
  - Musculoskeletal pain [Not Recovered/Not Resolved]
